FAERS Safety Report 10263850 (Version 1)
Quarter: 2014Q2

REPORT INFORMATION
  Report Type: Spontaneous
  Country: CA (occurrence: CA)
  Receive Date: 20140627
  Receipt Date: 20140627
  Transmission Date: 20141212
  Serious: Yes (Other)
  Sender: FDA-Public Use
  Company Number: CA-BEH-2014043363

PATIENT
  Age: 57 Year
  Sex: Male
  Weight: 74 kg

DRUGS (9)
  1. PRIVIGEN [Suspect]
     Indication: DERMATOMYOSITIS
     Dosage: 60 GM X 2 DAYS EVERY 8 WEEKS SINCE 2011
     Route: 042
     Dates: start: 20140611, end: 20140611
  2. RISEDRONATE [Concomitant]
  3. PREDNISONE [Concomitant]
  4. HYDROMORPHONE [Concomitant]
     Dosage: EVERY 8 HOURS
  5. DILAUDID [Concomitant]
     Route: 048
  6. TYLENOL EXTRA STRENGTH [Concomitant]
  7. PANTOPRAZOLE [Concomitant]
  8. RAMIPRIL [Concomitant]
  9. GEMFIBROZIL [Concomitant]
     Route: 048

REACTIONS (6)
  - Malaise [Unknown]
  - Headache [Unknown]
  - Nausea [Unknown]
  - Hyperhidrosis [Unknown]
  - Vision blurred [Unknown]
  - Visual impairment [Unknown]
